FAERS Safety Report 9081191 (Version 2)
Quarter: 2014Q1

REPORT INFORMATION
  Report Type: Spontaneous
  Country: US (occurrence: US)
  Receive Date: 20130218
  Receipt Date: 20140227
  Transmission Date: 20141002
  Serious: No
  Sender: FDA-Public Use
  Company Number: US-PFIZER INC-2013058218

PATIENT
  Age: 69 Year
  Sex: Female
  Weight: 90 kg

DRUGS (13)
  1. CADUET [Suspect]
     Indication: HYPERTENSION
     Dosage: 10 /20 MG, 1X/DAY
     Route: 048
     Dates: start: 20131025
  2. CADUET [Suspect]
     Indication: BLOOD CHOLESTEROL INCREASED
  3. XANAX [Concomitant]
     Indication: ANXIETY
     Dosage: 1 MG, 3X/DAY AS NEEDED FOR 30 DAYS
     Route: 048
     Dates: start: 20131202
  4. HYDROCHLOROTHIAZIDE [Concomitant]
     Dosage: 25 MG, 1X/DAY
     Route: 048
     Dates: start: 20131025
  5. VITAMIN A [Concomitant]
     Dosage: 8000 IU, 1X/DAY
     Route: 048
  6. VITAMIN C [Concomitant]
     Dosage: 500 MG, DAILY
     Route: 048
  7. VITAMIN D [Concomitant]
     Dosage: UNK
  8. VITAMIN E [Concomitant]
     Dosage: 600 IU, DAILY
     Route: 048
  9. CELEXA [Concomitant]
     Dosage: 10 MG, 1X/DAY FOR 30 DAYS
     Route: 048
     Dates: start: 20131119
  10. CENTRUM SILVER [Concomitant]
     Dosage: 1 DF, DAILY
     Route: 048
  11. POTASSIUM CHLORIDE [Concomitant]
     Dosage: 20 MEQ, 3X/DAY (WITH FOOD FOR 30 DAYS)
     Route: 048
     Dates: start: 20131025
  12. VITAMIN B12 + FOLIC ACID ^HEVERT^ [Concomitant]
     Dosage: 500-400 MCG, 1X/DAY
     Route: 048
  13. VITAMIN D3 [Concomitant]
     Dosage: 1000 IU, DAILY
     Route: 048

REACTIONS (6)
  - Arthritis [Unknown]
  - Fatigue [Unknown]
  - Back pain [Unknown]
  - Neck pain [Unknown]
  - Musculoskeletal pain [Unknown]
  - Malaise [Unknown]
